APPROVED DRUG PRODUCT: PALIPERIDONE
Active Ingredient: PALIPERIDONE
Strength: 3MG
Dosage Form/Route: TABLET, EXTENDED RELEASE;ORAL
Application: A212807 | Product #002 | TE Code: AB
Applicant: CSPC OUYI PHARMACEUTICAL CO LTD
Approved: Oct 29, 2020 | RLD: No | RS: No | Type: RX